FAERS Safety Report 9096531 (Version 2)
Quarter: 2013Q2

REPORT INFORMATION
  Report Type: Report from Study
  Country: CA (occurrence: CA)
  Receive Date: 20130211
  Receipt Date: 20130424
  Transmission Date: 20140414
  Serious: Yes (Death, Hospitalization)
  Sender: FDA-Public Use
  Company Number: CA-UCBSA-077293

PATIENT
  Age: 86 Year
  Sex: Female

DRUGS (5)
  1. CIMZIA [Suspect]
     Indication: RHEUMATOID ARTHRITIS
     Route: 058
     Dates: start: 20121212, end: 20130109
  2. ACETAMINOPHEN [Concomitant]
     Dosage: DOSE PER INTAKE: 325 MG; NO OF INTAKES: Q 4-6 HOURS
     Route: 048
  3. ACTONEL [Concomitant]
     Dosage: DOSE PER INTAKE: 150 MG
  4. CALCIUM [Concomitant]
     Dosage: DOSE PER INTAKE: 500 MG
  5. CYANOCOBALAMIN [Concomitant]
     Dosage: DOSE PER INTAKE: 1000 MCG/ML

REACTIONS (2)
  - Death [Fatal]
  - Hip fracture [Unknown]
